FAERS Safety Report 6821123-3 (Version None)
Quarter: 2010Q3

REPORT INFORMATION
  Report Type: 
  Country: None (occurrence: None)
  Receive Date: 20100707
  Receipt Date: 20080201
  Transmission Date: 20110219
  Serious: Yes (Death)
  Sender: FDA-Public Use
  Company Number: US-PFIZER INC-2007084789

PATIENT
  Sex: Female

DRUGS (4)
  1. ZOLOFT [Suspect]
     Indication: DEPRESSION
     Dates: start: 20070322, end: 20070603
  2. SERTRALINE HCL [Suspect]
     Indication: DEPRESSION
     Dates: start: 20070425, end: 20070514
  3. CONCERTA [Concomitant]
     Dates: start: 20070417
  4. ALL OTHER THERAPEUTIC PRODUCTS [Concomitant]
     Dates: start: 20070401

REACTIONS (3)
  - COMPLETED SUICIDE [None]
  - DEPRESSED MOOD [None]
  - TREMOR [None]
